FAERS Safety Report 8606513-0 (Version None)
Quarter: 2012Q3

REPORT INFORMATION
  Report Type: 
  Country: None (occurrence: None)
  Receive Date: 20120820
  Receipt Date: 20120816
  Transmission Date: 20120928
  Serious: No
  Sender: FDA-Public Use
  Company Number: US-PFIZER INC-2012201433

PATIENT
  Age: 61 Year
  Sex: Female
  Weight: 93.878 kg

DRUGS (9)
  1. DIAZEPAM [Concomitant]
     Indication: PANIC ATTACK
  2. GABAPENTIN [Suspect]
     Indication: NEUROPATHY PERIPHERAL
     Dosage: 1800 MG, 1X/DAY
     Dates: start: 20100101, end: 20110901
  3. GABAPENTIN [Suspect]
     Indication: ARTHROPATHY
  4. DIAZEPAM [Concomitant]
     Indication: ANXIETY
  5. GABAPENTIN [Suspect]
     Indication: OSTEOPOROSIS
  6. CELEBREX [Suspect]
     Indication: PAIN
     Dosage: 200 MG, 1X/DAY
     Dates: start: 20120101, end: 20120201
  7. GABAPENTIN [Suspect]
     Indication: MUSCLE SPASMS
     Dosage: 600 MG, 2X/DAY
     Dates: start: 20110901
  8. DIAZEPAM [Concomitant]
     Indication: MENOPAUSE
     Dosage: 5 MG, 3X/DAY
  9. GABAPENTIN [Suspect]
     Indication: BACK DISORDER

REACTIONS (3)
  - BACK PAIN [None]
  - OEDEMA PERIPHERAL [None]
  - DRUG INEFFECTIVE [None]
